FAERS Safety Report 7885561-2 (Version None)
Quarter: 2011Q4

REPORT INFORMATION
  Report Type: 
  Country: None (occurrence: None)
  Receive Date: 20111102
  Receipt Date: 20110623
  Transmission Date: 20120403
  Serious: No
  Sender: FDA-Public Use
  Company Number: US-AMGEN-USASP2011032376

PATIENT
  Age: 38 Year
  Sex: Female
  Weight: 65.76 kg

DRUGS (12)
  1. TRIAMCINOLON                       /00031901/ [Concomitant]
     Dosage: 0.5 %, UNK
  2. ESTRADIOL [Concomitant]
     Dosage: 0.1 MG, UNK
  3. PROAIR HFA [Concomitant]
  4. DESONATE [Concomitant]
  5. ENBREL [Suspect]
     Indication: PRODUCT USED FOR UNKNOWN INDICATION
     Dosage: 50 MG, 2 TIMES/WK
  6. VALIUM [Concomitant]
  7. VITAMIN B COMPLEX CAP [Concomitant]
  8. ACETAMINOPHEN AND HYDROCODONE BITARTRATE [Concomitant]
  9. ABILIFY [Concomitant]
     Dosage: 10 MG, UNK
  10. MELOXICAM [Concomitant]
     Dosage: 7.5 MG, UNK
  11. SYNTHROID [Concomitant]
     Dosage: 25 MUG, UNK
  12. VITAMIN D [Concomitant]

REACTIONS (6)
  - INJECTION SITE SWELLING [None]
  - INJECTION SITE PRURITUS [None]
  - INJECTION SITE WARMTH [None]
  - INJECTION SITE INDURATION [None]
  - INJECTION SITE HAEMATOMA [None]
  - INJECTION SITE ERYTHEMA [None]
